FAERS Safety Report 6730486-9 (Version None)
Quarter: 2010Q2

REPORT INFORMATION
  Report Type: 
  Country: None (occurrence: None)
  Receive Date: 20100514
  Receipt Date: 20100505
  Transmission Date: 20101027
  Serious: Yes (Other)
  Sender: FDA-Public Use
  Company Number: 233507J09USA

PATIENT
  Age: 40 Year
  Sex: Female

DRUGS (1)
  1. REBIF [Suspect]
     Dosage: 22 MCG, 3 IN 1  WK, SUBCUTANEOUS
     Route: 058
     Dates: start: 20091102, end: 20090101

REACTIONS (7)
  - CONDITION AGGRAVATED [None]
  - CONVULSION [None]
  - FALL [None]
  - HEPATOMEGALY [None]
  - INJURY [None]
  - MOBILITY DECREASED [None]
  - OEDEMA PERIPHERAL [None]
